FAERS Safety Report 15988739 (Version 1)
Quarter: 2019Q1

REPORT INFORMATION
  Report Type: Spontaneous
  Country: US (occurrence: US)
  Receive Date: 20190221
  Receipt Date: 20190221
  Transmission Date: 20190418
  Serious: No
  Sender: FDA-Public Use
  Company Number: US-ASTRAZENECA-2019SE15024

PATIENT
  Age: 66 Year
  Sex: Female

DRUGS (1)
  1. SYMBICORT [Suspect]
     Active Substance: BUDESONIDE\FORMOTEROL FUMARATE DIHYDRATE
     Indication: BRONCHITIS
     Dosage: TWO TIMES A DAY
     Route: 055
     Dates: start: 20190120

REACTIONS (6)
  - Nasal congestion [Unknown]
  - Asthenia [Unknown]
  - Productive cough [Unknown]
  - Product use in unapproved indication [Unknown]
  - Off label use [Unknown]
  - Heart rate increased [Unknown]
